FAERS Safety Report 4588790-9 (Version None)
Quarter: 2005Q1

REPORT INFORMATION
  Report Type: 
  Country: None (occurrence: None)
  Receive Date: 20050222
  Receipt Date: 20050208
  Transmission Date: 20050727
  Serious: Yes (Hospitalization)
  Sender: FDA-Public Use
  Company Number: FR-JNJFOC-20040900024

PATIENT
  Sex: Female

DRUGS (2)
  1. EPITOMAX [Suspect]
     Indication: EPILEPSY
     Route: 049
     Dates: start: 19980101
  2. URBANYL [Concomitant]
     Indication: CONVULSION PROPHYLAXIS
     Route: 065
     Dates: start: 19980101

REACTIONS (2)
  - ABNORMAL LABOUR [None]
  - DRUG EXPOSURE DURING PREGNANCY [None]
